FAERS Safety Report 8437602 (Version 3)
Quarter: 2013Q4

REPORT INFORMATION
  Report Type: Spontaneous
  Country: US (occurrence: US)
  Receive Date: 20120302
  Receipt Date: 20131112
  Transmission Date: 20140711
  Serious: Yes (Death, Hospitalization)
  Sender: FDA-Public Use
  Company Number: US-SANOFI-AVENTIS-2012SA012450

PATIENT
  Age: 73 Year
  Sex: Female

DRUGS (2)
  1. LOVENOX [Suspect]
     Indication: ANTIPLATELET THERAPY
     Route: 042
     Dates: start: 20110731
  2. ASPIRIN [Concomitant]

REACTIONS (8)
  - Ischaemic stroke [Fatal]
  - Thrombosis [Fatal]
  - Skull X-ray abnormal [Fatal]
  - Aphagia [Fatal]
  - Gastrostomy [Fatal]
  - Paralysis [Fatal]
  - Memory impairment [Fatal]
  - Impaired self-care [Fatal]
